FAERS Safety Report 8175248-3 (Version None)
Quarter: 2012Q1

REPORT INFORMATION
  Report Type: 
  Country: None (occurrence: None)
  Receive Date: 20120229
  Receipt Date: 20120221
  Transmission Date: 20120608
  Serious: Yes (Other)
  Sender: FDA-Public Use
  Company Number: JP-PFIZER INC-2012052794

PATIENT
  Age: 88 Year
  Sex: Female

DRUGS (13)
  1. MENEST [Concomitant]
     Dosage: UNK
  2. LAC B [Concomitant]
     Dosage: UNK
  3. DAIKENTYUTO [Concomitant]
     Dosage: UNK
  4. FAMOTIDINE [Concomitant]
     Dosage: 20 MG
  5. YOKUKAN-SAN [Concomitant]
     Dosage: UNK
  6. SINGULAIR [Concomitant]
     Dosage: UNK
  7. CELECOXIB [Suspect]
     Dosage: 200 MG, AS NEEDED
     Route: 048
  8. MARZULENE S [Concomitant]
     Dosage: UNK
  9. UNIPHYL [Concomitant]
     Dosage: UNK
  10. DIGOXIN [Concomitant]
     Dosage: UNK
  11. URSO 250 [Concomitant]
     Dosage: UNK
     Route: 048
  12. CELECOXIB [Suspect]
     Dosage: 200 MG, 1X/DAY
     Route: 048
  13. LEVOTHYROXINE SODIUM [Concomitant]
     Dosage: UNK

REACTIONS (3)
  - SMALL INTESTINAL HAEMORRHAGE [None]
  - FALL [None]
  - ALTERED STATE OF CONSCIOUSNESS [None]
